FAERS Safety Report 25276175 (Version 1)
Quarter: 2025Q2

REPORT INFORMATION
  Report Type: Spontaneous
  Country: LK (occurrence: LK)
  Receive Date: 20250507
  Receipt Date: 20250507
  Transmission Date: 20250716
  Serious: Yes (Hospitalization, Other)
  Sender: Norvium Bioscience
  Company Number: LK-Norvium Bioscience LLC-080119

PATIENT
  Age: 17 Year
  Sex: Male

DRUGS (1)
  1. AMLODIPINE BESYLATE [Suspect]
     Active Substance: AMLODIPINE BESYLATE
     Indication: Product used for unknown indication
     Route: 048

REACTIONS (5)
  - Intentional overdose [Unknown]
  - Toxicity to various agents [Recovered/Resolved]
  - Respiratory failure [Recovered/Resolved]
  - Sinus bradycardia [Recovered/Resolved]
  - Mental status changes [Not Recovered/Not Resolved]
